FAERS Safety Report 4264748-4 (Version None)
Quarter: 2004Q1

REPORT INFORMATION
  Report Type: 
  Country: None (occurrence: None)
  Receive Date: 20040102
  Receipt Date: 20031224
  Transmission Date: 20041129
  Serious: Yes (Death, Hospitalization)
  Sender: FDA-Public Use
  Company Number: 200326478BWH

PATIENT
  Age: 76 Year
  Sex: Male
  Weight: 78.9259 kg

DRUGS (5)
  1. DTIC-DOME [Suspect]
  2. MDX-010 (MDI 002/MDI003) (UNCODEABLE ^INVESTIGATIONAL DRUG^) [Suspect]
     Dosage: 3 MG/KG, OM, INTRAVENOUS
     Route: 042
     Dates: start: 20030421, end: 20030717
  3. PREDNISONE [Concomitant]
  4. ASPIRIN [Concomitant]
  5. DECADRON [Concomitant]

REACTIONS (25)
  - APHAGIA [None]
  - ASPERGILLOSIS [None]
  - ASTHENIA [None]
  - ATRIAL FIBRILLATION [None]
  - AUTOIMMUNE DISORDER [None]
  - BACTERIA STOOL IDENTIFIED [None]
  - CHILLS [None]
  - CLOSTRIDIUM DIFFICILE TOXIN TEST [None]
  - COLITIS [None]
  - DEHYDRATION [None]
  - DIARRHOEA [None]
  - DISSEMINATED INTRAVASCULAR COAGULATION [None]
  - DIZZINESS [None]
  - HAEMATOCHEZIA [None]
  - HAEMORRHAGE [None]
  - HYPOTENSION [None]
  - LARGE INTESTINAL ULCER [None]
  - LEUKOPENIA [None]
  - MALNUTRITION [None]
  - PNEUMONIA ASPIRATION [None]
  - POST PROCEDURAL COMPLICATION [None]
  - PYREXIA [None]
  - RECTAL HAEMORRHAGE [None]
  - THROMBOCYTOPENIA [None]
  - VASCULITIS [None]
